FAERS Safety Report 18405987 (Version 2)
Quarter: 2020Q4

REPORT INFORMATION
  Report Type: Report from Study
  Country: None (occurrence: IL)
  Receive Date: 20201020
  Receipt Date: 20201225
  Transmission Date: 20210114
  Serious: Yes (Death, Hospitalization, Other)
  Sender: FDA-Public Use
  Company Number: IL-ABBVIE-19K-082-3174542-00

PATIENT
  Age: 57 Year
  Sex: Male
  Weight: 105 kg

DRUGS (17)
  1. R CHOP [Suspect]
     Active Substance: CYCLOPHOSPHAMIDE\DOXORUBICIN\PREDNISONE\RITUXIMAB\VINCRISTINE
     Indication: CHRONIC LYMPHOCYTIC LEUKAEMIA
     Route: 065
     Dates: start: 20200617, end: 20200617
  2. STATOR [Concomitant]
     Indication: CARDIOVASCULAR EVENT PROPHYLAXIS
     Dates: start: 20190820
  3. ALLORIL [Concomitant]
     Active Substance: ALLOPURINOL
     Indication: PROPHYLAXIS
     Route: 048
     Dates: start: 20191024
  4. JARDIANCE [Concomitant]
     Active Substance: EMPAGLIFLOZIN
     Indication: DIABETES MELLITUS
     Dates: start: 20190622
  5. VENCLEXTA [Suspect]
     Active Substance: VENETOCLAX
     Dosage: DOSE INCREASE ACCORDING TO VENETOCLAX DOSE TITRATION SCHEME
     Route: 048
     Dates: start: 20191101, end: 20191105
  6. RASBURICASE [Concomitant]
     Active Substance: RASBURICASE
     Indication: PROPHYLAXIS
     Dates: start: 20191028, end: 20191030
  7. VENCLEXTA [Suspect]
     Active Substance: VENETOCLAX
     Dosage: RE-RAMP UP
     Route: 048
     Dates: start: 20200402, end: 20200408
  8. VENCLEXTA [Suspect]
     Active Substance: VENETOCLAX
     Dosage: DOSE INCREASE ACCORDING TO VENETOCLAX DOSE TITRATION SCHEME
     Route: 048
     Dates: start: 20191121, end: 20191127
  9. VENCLEXTA [Suspect]
     Active Substance: VENETOCLAX
     Dosage: RE-RAMP UP
     Route: 048
     Dates: start: 20200323, end: 20200324
  10. VENCLEXTA [Suspect]
     Active Substance: VENETOCLAX
     Indication: CHRONIC LYMPHOCYTIC LEUKAEMIA
     Dosage: DOSE INCREASE ACCORDING TO VENETOCLAX DOSE TITRATION SCHEME
     Route: 048
     Dates: start: 20191030, end: 20191031
  11. VENCLEXTA [Suspect]
     Active Substance: VENETOCLAX
     Dosage: DOSE INCREASE ACCORDING TO VENETOCLAX DOSE TITRATION SCHEME
     Route: 048
     Dates: start: 20191114, end: 20191120
  12. VENCLEXTA [Suspect]
     Active Substance: VENETOCLAX
     Dosage: DOSE INCREASE ACCORDING TO VENETOCLAX DOSE TITRATION SCHEME
     Route: 048
     Dates: start: 20191128, end: 20200109
  13. VENCLEXTA [Suspect]
     Active Substance: VENETOCLAX
     Dosage: RE-RAMP UP
     Route: 048
     Dates: start: 20200325, end: 20200401
  14. VENCLEXTA [Suspect]
     Active Substance: VENETOCLAX
     Dosage: RE-RAMP UP
     Route: 048
     Dates: start: 20200409, end: 20200611
  15. VENCLEXTA [Suspect]
     Active Substance: VENETOCLAX
     Dosage: DOSE INCREASE ACCORDING TO VENETOCLAX DOSE TITRATION SCHEME
     Route: 048
     Dates: start: 20191106, end: 20191113
  16. OBINUTUZUMAB. [Suspect]
     Active Substance: OBINUTUZUMAB
     Indication: CHRONIC LYMPHOCYTIC LEUKAEMIA
     Dosage: CYCLE 1, 100MG
     Route: 065
     Dates: start: 20200223, end: 20200223
  17. CARDILOC [Concomitant]
     Active Substance: BISOPROLOL FUMARATE
     Indication: HYPERTENSION
     Dates: start: 20171005

REACTIONS (5)
  - Chronic lymphocytic leukaemia [Unknown]
  - Thrombocytopenia [Not Recovered/Not Resolved]
  - Condition aggravated [Unknown]
  - Haemolysis [Not Recovered/Not Resolved]
  - COVID-19 [Fatal]

NARRATIVE: CASE EVENT DATE: 2019
